FAERS Safety Report 8132407-3 (Version None)
Quarter: 2012Q1

REPORT INFORMATION
  Report Type: 
  Country: None (occurrence: None)
  Receive Date: 20120213
  Receipt Date: 20120201
  Transmission Date: 20120608
  Serious: Yes (Hospitalization)
  Sender: FDA-Public Use
  Company Number: FR-ELI_LILLY_AND_COMPANY-FR201202000572

PATIENT
  Age: 71 Year
  Sex: Female

DRUGS (5)
  1. FORTEO [Suspect]
     Indication: OSTEOPOROSIS
     Dosage: 20 UG, QD
     Route: 058
     Dates: start: 20100901, end: 20111227
  2. FORTEO [Suspect]
     Dosage: 20 UG, QD
     Route: 058
     Dates: start: 20120130
  3. CALCIDOSE                          /00751519/ [Concomitant]
     Indication: OSTEOPOROSIS
  4. VITAMIN D [Concomitant]
     Indication: OSTEOPOROSIS
  5. ACETAMINOPHEN AND CODEINE PHOSPHATE [Concomitant]
     Indication: BONE PAIN
     Dosage: UNK, PRN

REACTIONS (2)
  - GASTROINTESTINAL DISORDER [None]
  - PARKINSONIAN CRISIS [None]
